FAERS Safety Report 4309162-8 (Version None)
Quarter: 2004Q1

REPORT INFORMATION
  Report Type: 
  Country: None (occurrence: None)
  Receive Date: 20040301
  Receipt Date: 20040217
  Transmission Date: 20041129
  Serious: Yes (Other)
  Sender: FDA-Public Use
  Company Number: K200400230

PATIENT
  Sex: 0

DRUGS (1)
  1. EPINEPHRINE [Suspect]
     Indication: FACE LIFT
     Dosage: SUBCUTANEOUS
     Route: 058

REACTIONS (2)
  - HAEMATOMA [None]
  - POST PROCEDURAL COMPLICATION [None]
